FAERS Safety Report 4698003-5 (Version None)
Quarter: 2005Q2

REPORT INFORMATION
  Report Type: 
  Country: None (occurrence: None)
  Receive Date: 20050620
  Receipt Date: 20050428
  Transmission Date: 20051028
  Serious: Yes (Death, Life-Threatening)
  Sender: FDA-Public Use
  Company Number: 11060

PATIENT
  Age: 65 Year
  Sex: Male

DRUGS (3)
  1. METHOTREXATE [Suspect]
     Indication: GASTRIC CANCER RECURRENT
     Dosage: 140 MG PER_CYCLE IV
     Route: 042
     Dates: start: 20050418, end: 20050418
  2. FLUOROURACIL [Suspect]
     Indication: GASTRIC CANCER RECURRENT
     Dosage: 840 MG IV
     Route: 042
     Dates: start: 20050418, end: 20050418
  3. LEUCOVORIN [Suspect]
     Indication: GASTRIC CANCER RECURRENT
     Dosage: 45 MG IV
     Route: 042
     Dates: start: 20050419, end: 20050420

REACTIONS (13)
  - ASCITES [None]
  - DEPRESSED LEVEL OF CONSCIOUSNESS [None]
  - GASTRIC CANCER RECURRENT [None]
  - GRANULOCYTE COUNT DECREASED [None]
  - HAEMOGLOBIN DECREASED [None]
  - ILEUS [None]
  - INTESTINAL OBSTRUCTION [None]
  - INTESTINAL PERFORATION [None]
  - NEUTROPHIL PERCENTAGE DECREASED [None]
  - OLIGURIA [None]
  - SEPSIS [None]
  - SHOCK [None]
  - WHITE BLOOD CELL COUNT DECREASED [None]
